FAERS Safety Report 16081623 (Version 2)
Quarter: 2020Q2

REPORT INFORMATION
  Report Type: Spontaneous
  Country: US (occurrence: US)
  Receive Date: 20190316
  Receipt Date: 20200409
  Transmission Date: 20200713
  Serious: No
  Sender: FDA-Public Use
  Company Number: US-BIO PRODUCTS LABORATORY LTD-2064116

PATIENT
  Age: 60 Year
  Sex: Male

DRUGS (7)
  1. RITUXIMAB. [Suspect]
     Active Substance: RITUXIMAB
  2. ROMIPLOSTIM [Suspect]
     Active Substance: ROMIPLOSTIM
  3. ELTROMBOPAG [Suspect]
     Active Substance: ELTROMBOPAG
  4. HIGH DOSE CORTICOSTEROIDS [Suspect]
     Active Substance: UNSPECIFIED INGREDIENT
  5. LOW DOSE DANAZOL [Suspect]
     Active Substance: DANAZOL
  6. GENERIC IVIG [Suspect]
     Active Substance: HUMAN IMMUNOGLOBULIN G
     Indication: MYELODYSPLASTIC SYNDROME
     Route: 042
  7. PLASMA EXCHANGE [Suspect]
     Active Substance: ALBUMIN HUMAN

REACTIONS (2)
  - Off label use [Recovering/Resolving]
  - Drug ineffective for unapproved indication [Unknown]
